FAERS Safety Report 16736211 (Version 1)
Quarter: 2019Q4

REPORT INFORMATION
  Report Type: Spontaneous
  Country: US (occurrence: US)
  Receive Date: 20190823
  Receipt Date: 20190823
  Transmission Date: 20200122
  Serious: Yes (Other)
  Sender: FDA-Public Use
  Company Number: None

PATIENT
  Age: 72 Year
  Sex: Female
  Weight: 65 kg

DRUGS (4)
  1. VIMPAT [Concomitant]
     Active Substance: LACOSAMIDE
  2. BRIVIACT [Concomitant]
     Active Substance: BRIVARACETAM
  3. KEPPRA [Concomitant]
     Active Substance: LEVETIRACETAM
  4. PREGABALIN. [Suspect]
     Active Substance: PREGABALIN
     Indication: EPILEPSY
     Route: 048
     Dates: start: 20190805, end: 20190823

REACTIONS (7)
  - Epilepsy [None]
  - Hemiparaesthesia [None]
  - Paraesthesia [None]
  - Seizure [None]
  - Vision blurred [None]
  - Product substitution issue [None]
  - Fatigue [None]

NARRATIVE: CASE EVENT DATE: 20190805
